FAERS Safety Report 5723048-3 (Version None)
Quarter: 2008Q2

REPORT INFORMATION
  Report Type: 
  Country: None (occurrence: None)
  Receive Date: 20080425
  Receipt Date: 20080417
  Transmission Date: 20081010
  Serious: Yes (Hospitalization)
  Sender: FDA-Public Use
  Company Number: 2008-00732

PATIENT
  Age: 70 Year
  Sex: Male
  Weight: 65 kg

DRUGS (4)
  1. VELCADE [Suspect]
     Indication: MULTIPLE MYELOMA
     Dosage: 1.3 MG/M2, INTRAVENOUS, 0.7 MG/M2; INTRAVENOUS
     Route: 042
     Dates: start: 20080107, end: 20080225
  2. VELCADE [Suspect]
     Indication: MULTIPLE MYELOMA
     Dosage: 1.3 MG/M2, INTRAVENOUS, 0.7 MG/M2; INTRAVENOUS
     Route: 042
     Dates: start: 20080317
  3. DOXIL [Suspect]
     Indication: MULTIPLE MYELOMA
     Dosage: 30 MG/M2; INTRAVENOUS
     Route: 042
     Dates: start: 20080110
  4. DEXAMETHASONE TAB [Suspect]
     Indication: MULTIPLE MYELOMA
     Dosage: 40 MG, ORAL
     Route: 048
     Dates: start: 20080107

REACTIONS (3)
  - BLADDER DISTENSION [None]
  - DYSPNOEA [None]
  - GASTRIC DILATATION [None]
